FAERS Safety Report 9009245 (Version 2)
Quarter: 2013Q1

REPORT INFORMATION
  Report Type: Report from Study
  Country: US (occurrence: US)
  Receive Date: 20130111
  Receipt Date: 20130314
  Transmission Date: 20140127
  Serious: No
  Sender: FDA-Public Use
  Company Number: US-US-EMD SERONO, INC.-7186010

PATIENT
  Age: 66 Year
  Sex: Male
  Weight: 73 kg

DRUGS (6)
  1. REBIF [Suspect]
     Indication: MULTIPLE SCLEROSIS
     Route: 058
     Dates: start: 20120307, end: 20121222
  2. HYDROCODONE [Concomitant]
     Indication: NEUROPATHY PERIPHERAL
     Route: 048
  3. HYDROCODONE [Concomitant]
     Indication: PAIN
  4. ABILIFY [Concomitant]
     Indication: HALLUCINATION, AUDITORY
  5. CYMBALTA [Concomitant]
     Indication: HALLUCINATION, AUDITORY
  6. BACLOFEN [Concomitant]
     Indication: MUSCLE SPASMS
     Route: 048

REACTIONS (1)
  - Mycobacterium test positive [Unknown]
